FAERS Safety Report 9601848 (Version 1)
Quarter: 2013Q4

REPORT INFORMATION
  Report Type: Spontaneous
  Country: IT (occurrence: None)
  Receive Date: 20131002
  Receipt Date: 20131002
  Transmission Date: 20140711
  Serious: Yes (Other)
  Sender: FDA-Public Use
  Company Number: AUR-APL-2013-08076

PATIENT
  Age: 83 Year
  Sex: Female

DRUGS (6)
  1. BISOPROLOL [Suspect]
     Indication: PRODUCT USED FOR UNKNOWN INDICATION
     Dates: start: 20120801, end: 20130603
  2. EBIXA [Suspect]
     Indication: PRODUCT USED FOR UNKNOWN INDICATION
  3. TRIATEC (PANADEINECO) [Concomitant]
  4. LASIX (FUROSEMIDE) [Concomitant]
  5. TRITTICO (TRAZODONE) [Concomitant]
  6. CARDIOASPIRIN (ACETYLSALICYLIC ACID) [Concomitant]

REACTIONS (2)
  - Chest pain [None]
  - Sinus bradycardia [None]
